FAERS Safety Report 5083462-9 (Version None)
Quarter: 2006Q3

REPORT INFORMATION
  Report Type: 
  Country: None (occurrence: None)
  Receive Date: 20060816
  Receipt Date: 20060801
  Transmission Date: 20061208
  Serious: Yes (Hospitalization)
  Sender: FDA-Public Use
  Company Number: US-2005-024530

PATIENT
  Age: 69 Year
  Sex: Male
  Weight: 68 kg

DRUGS (5)
  1. BETASERON [Suspect]
     Indication: RELAPSING-REMITTING MULTIPLE SCLEROSIS
     Dosage: 4 MIU, EVERY 2D, SUBCUTANEOUS
     Route: 058
     Dates: start: 20040819, end: 20050926
  2. KLONOPIN [Concomitant]
  3. VALIUM [Concomitant]
  4. TYLENOL [Concomitant]
  5. ASPIRIN [Concomitant]

REACTIONS (2)
  - MUSCLE SPASMS [None]
  - PYREXIA [None]
